FAERS Safety Report 26174553 (Version 1)
Quarter: 2025Q4

REPORT INFORMATION
  Report Type: Spontaneous
  Country: EU (occurrence: EU)
  Receive Date: 20251218
  Receipt Date: 20251218
  Transmission Date: 20260117
  Serious: Yes (Death, Hospitalization, Other)
  Sender: Medicap Laboratories
  Company Number: EU-Medicap-000110

PATIENT
  Age: 70 Year
  Sex: Male

DRUGS (1)
  1. METFORMIN [Suspect]
     Active Substance: METFORMIN HYDROCHLORIDE
     Indication: Type 2 diabetes mellitus
     Route: 065

REACTIONS (11)
  - Visceral congestion [Fatal]
  - Arthritis infective [Fatal]
  - Dysuria [Fatal]
  - Respiratory failure [Fatal]
  - Chromaturia [Fatal]
  - Pulmonary oedema [Fatal]
  - Thyroid cyst [Fatal]
  - Hepatic steatosis [Fatal]
  - Toxicity to various agents [Fatal]
  - Dyspnoea [Fatal]
  - Vomiting [Fatal]
